FAERS Safety Report 7570546-6 (Version None)
Quarter: 2011Q2

REPORT INFORMATION
  Report Type: 
  Country: None (occurrence: None)
  Receive Date: 20110624
  Receipt Date: 20110404
  Transmission Date: 20111010
  Serious: No
  Sender: FDA-Public Use
  Company Number: US-ALLERGAN-1104666US

PATIENT
  Age: 63 Year
  Sex: Female

DRUGS (2)
  1. LATISSE [Suspect]
     Indication: HYPOTRICHOSIS
     Dosage: 1 GTT, QHS
  2. ARTIFICIAL TEARS                   /00445101/ [Concomitant]
     Dosage: UNK

REACTIONS (3)
  - APPLICATION SITE PAIN [None]
  - APPLICATION SITE IRRITATION [None]
  - MADAROSIS [None]
